FAERS Safety Report 20383925 (Version 1)
Quarter: 2022Q1

REPORT INFORMATION
  Report Type: Spontaneous
  Country: US (occurrence: None)
  Receive Date: 20220127
  Receipt Date: 20220127
  Transmission Date: 20220424
  Serious: No
  Sender: FDA-Public Use
  Company Number: None

PATIENT
  Age: 57 Year
  Sex: Female

DRUGS (1)
  1. AUBAGIO [Suspect]
     Active Substance: TERIFLUNOMIDE
     Dosage: FREQUENCY : TWICE A DAY;?
     Route: 048
     Dates: start: 2019

REACTIONS (2)
  - Therapy interrupted [None]
  - Renal failure [None]

NARRATIVE: CASE EVENT DATE: 20220127
